FAERS Safety Report 16007687 (Version 1)
Quarter: 2019Q1

REPORT INFORMATION
  Report Type: Spontaneous
  Country: US (occurrence: US)
  Receive Date: 20190226
  Receipt Date: 20190226
  Transmission Date: 20190418
  Serious: No
  Sender: FDA-Public Use
  Company Number: US-PFIZER INC-2019083468

PATIENT
  Age: 4 Decade
  Sex: Female

DRUGS (1)
  1. XELJANZ XR [Suspect]
     Active Substance: TOFACITINIB CITRATE
     Indication: VITILIGO
     Dosage: UNK, 1X/DAY

REACTIONS (3)
  - Blood alkaline phosphatase increased [Unknown]
  - Product use in unapproved indication [Unknown]
  - Platelet count increased [Unknown]
